FAERS Safety Report 23692289 (Version 1)
Quarter: 2024Q2

REPORT INFORMATION
  Report Type: Spontaneous
  Country: US (occurrence: US)
  Receive Date: 20240401
  Receipt Date: 20240401
  Transmission Date: 20240716
  Serious: Yes (Other)
  Sender: FDA-Public Use
  Company Number: US-OTSUKA-2024_008080

PATIENT
  Age: 46 Year
  Sex: Female
  Weight: 90.72 kg

DRUGS (2)
  1. REXULTI [Suspect]
     Active Substance: BREXPIPRAZOLE
     Indication: Antidepressant therapy
     Dosage: 0.25 MG
     Route: 065
     Dates: start: 202402
  2. REXULTI [Suspect]
     Active Substance: BREXPIPRAZOLE
     Dosage: 2 MG
     Route: 065
     Dates: start: 202402

REACTIONS (7)
  - Mental impairment [Not Recovered/Not Resolved]
  - Adverse drug reaction [Not Recovered/Not Resolved]
  - Depression [Not Recovered/Not Resolved]
  - Anxiety [Unknown]
  - Tremor [Not Recovered/Not Resolved]
  - Loss of employment [Unknown]
  - Underdose [Unknown]

NARRATIVE: CASE EVENT DATE: 20240201
